FAERS Safety Report 7016118-3 (Version None)
Quarter: 2010Q3

REPORT INFORMATION
  Report Type: 
  Country: None (occurrence: None)
  Receive Date: 20100923
  Receipt Date: 20100909
  Transmission Date: 20110219
  Serious: Yes (Other)
  Sender: FDA-Public Use
  Company Number: 2010SP050298

PATIENT
  Sex: Female

DRUGS (1)
  1. PEG-INTRON [Suspect]
     Indication: PRODUCT USED FOR UNKNOWN INDICATION

REACTIONS (10)
  - ALOPECIA [None]
  - ARTHRALGIA [None]
  - DYSPNOEA [None]
  - GALLBLADDER CANCER [None]
  - HEADACHE [None]
  - HYPOACUSIS [None]
  - INFLUENZA LIKE ILLNESS [None]
  - PANCREATIC CARCINOMA [None]
  - PLATELET COUNT DECREASED [None]
  - TREMOR [None]
